FAERS Safety Report 13272203 (Version 1)
Quarter: 2017Q1

REPORT INFORMATION
  Report Type: Spontaneous
  Country: US (occurrence: US)
  Receive Date: 20170224
  Receipt Date: 20170224
  Transmission Date: 20170428
  Serious: No
  Sender: FDA-Public Use
  Company Number: None

PATIENT
  Age: 58 Year
  Sex: Female

DRUGS (1)
  1. FORTEO [Suspect]
     Active Substance: TERIPARATIDE

REACTIONS (5)
  - Weight decreased [None]
  - Fatigue [None]
  - Constipation [None]
  - Decreased appetite [None]
  - Speech disorder [None]

NARRATIVE: CASE EVENT DATE: 20170124
